FAERS Safety Report 7950488-4 (Version None)
Quarter: 2011Q4

REPORT INFORMATION
  Report Type: 
  Country: None (occurrence: None)
  Receive Date: 20111130
  Receipt Date: 20111121
  Transmission Date: 20120403
  Serious: Yes (Hospitalization)
  Sender: FDA-Public Use
  Company Number: AU-ASTRAZENECA-2011SE70704

PATIENT
  Age: 19303 Day
  Sex: Female

DRUGS (2)
  1. SEROQUEL XR [Suspect]
     Route: 048
  2. VALDOXAN [Suspect]
     Route: 048
     Dates: start: 20110727

REACTIONS (4)
  - MYOCARDIAL INFARCTION [None]
  - TROPONIN INCREASED [None]
  - BLOOD CREATINE PHOSPHOKINASE INCREASED [None]
  - ACUTE MYOCARDIAL INFARCTION [None]
